FAERS Safety Report 25769436 (Version 1)
Quarter: 2025Q3

REPORT INFORMATION
  Report Type: Spontaneous
  Country: YE (occurrence: YE)
  Receive Date: 20250906
  Receipt Date: 20250906
  Transmission Date: 20251021
  Serious: Yes (Hospitalization, Other)
  Sender: NOVITIUM PHARMA
  Company Number: YE-NOVITIUMPHARMA-2025YENVP02235

PATIENT
  Age: 28 Year
  Sex: Female

DRUGS (1)
  1. DEXAMETHASONE [Suspect]
     Active Substance: DEXAMETHASONE
     Indication: Weight increased

REACTIONS (3)
  - Cushing^s syndrome [Unknown]
  - Adrenal insufficiency [Unknown]
  - Intentional product misuse [Unknown]
